FAERS Safety Report 9032540 (Version 1)
Quarter: 2013Q1

REPORT INFORMATION
  Report Type: Spontaneous
  Country: BR (occurrence: BR)
  Receive Date: 20130125
  Receipt Date: 20130125
  Transmission Date: 20140127
  Serious: Yes (Other)
  Sender: FDA-Public Use
  Company Number: CHNY2013BR000518

PATIENT
  Age: 86 Year
  Sex: Female
  Weight: 79 kg

DRUGS (2)
  1. PARCEL [Suspect]
     Indication: HEADACHE
     Dosage: 1-2 DF, WHEN HAD EPISODE
     Route: 048
  2. DIOVAN [Suspect]
     Dosage: 320 MG, QD
     Route: 048

REACTIONS (3)
  - Renal artery arteriosclerosis [Recovered/Resolved]
  - Arthropathy [Not Recovered/Not Resolved]
  - Disease recurrence [Recovered/Resolved]
